FAERS Safety Report 8044001-3 (Version None)
Quarter: 2011Q4

REPORT INFORMATION
  Report Type: 
  Country: None (occurrence: None)
  Receive Date: 20111209
  Receipt Date: 20110928
  Transmission Date: 20120403
  Serious: No
  Sender: FDA-Public Use
  Company Number: 2011SP046032

PATIENT
  Age: 60 Year
  Sex: Female

DRUGS (4)
  1. VICTRELIS [Suspect]
     Indication: HEPATITIS C
     Dates: start: 20110501, end: 20110928
  2. SERTRALINE HYDROCHLORIDE [Concomitant]
  3. REBETOL [Suspect]
     Indication: HEPATITIS C
     Dosage: 1 DF
     Dates: end: 20110928
  4. PEG-INTRON [Suspect]
     Indication: HEPATITIS C
     Dates: end: 20110928

REACTIONS (1)
  - MALAISE [None]
